FAERS Safety Report 21324339 (Version 1)
Quarter: 2022Q3

REPORT INFORMATION
  Report Type: Spontaneous
  Country: US (occurrence: None)
  Receive Date: 20220912
  Receipt Date: 20220912
  Transmission Date: 20221026
  Serious: No
  Sender: FDA-Public Use
  Company Number: None

PATIENT
  Sex: Male

DRUGS (1)
  1. CABENUVA [Suspect]
     Active Substance: CABOTEGRAVIR\RILPIVIRINE
     Indication: HIV infection
     Dosage: 600/900 ONCE A MONTH IM?
     Route: 041
     Dates: start: 202208

REACTIONS (3)
  - Panic attack [None]
  - Anxiety [None]
  - Hypertension [None]

NARRATIVE: CASE EVENT DATE: 20220801
